FAERS Safety Report 9924278 (Version 2)
Quarter: 2014Q2

REPORT INFORMATION
  Report Type: Report from Study
  Country: CA (occurrence: CA)
  Receive Date: 20140226
  Receipt Date: 20140624
  Transmission Date: 20141212
  Serious: Yes (Other)
  Sender: FDA-Public Use
  Company Number: CA-PFIZER INC-2014051267

PATIENT
  Age: 78 Year
  Sex: Male
  Weight: 82.4 kg

DRUGS (8)
  1. DOXORUBICIN HCL [Suspect]
     Indication: SARCOMA
     Dosage: UNK MG, CYCLIC
     Route: 040
     Dates: start: 20130625
  2. DOXORUBICIN HCL [Suspect]
     Dosage: 151 MG (75 MG/M2), CYCLIC
     Route: 040
     Dates: start: 20130715
  3. FLOMAX [Concomitant]
     Dosage: UNK
     Dates: start: 2009
  4. AVODART [Concomitant]
     Dosage: UNK
     Dates: start: 2009
  5. ASA [Concomitant]
     Dosage: UNK
     Dates: start: 2009
  6. AVALIDE [Concomitant]
     Dosage: UNK
     Dates: start: 2005
  7. ONDANSETRON [Concomitant]
     Dosage: UNK
     Dates: start: 20130625, end: 20131212
  8. DEXAMETHASONE [Concomitant]
     Dosage: UNK
     Dates: start: 20130625, end: 20131212

REACTIONS (1)
  - Pneumothorax [Recovered/Resolved]
